FAERS Safety Report 4362149-1 (Version None)
Quarter: 2004Q2

REPORT INFORMATION
  Report Type: 
  Country: None (occurrence: None)
  Receive Date: 20040518
  Receipt Date: 20040503
  Transmission Date: 20050107
  Serious: Yes (Other)
  Sender: FDA-Public Use
  Company Number: S04-USA-02674-01

PATIENT
  Age: 68 Year
  Sex: Female

DRUGS (4)
  1. LEVOTHYROID (LEVOTHYROXINE SODIUM) [Suspect]
     Indication: HYPOTHYROIDISM
     Dosage: 100 MCG QD PO
     Route: 048
     Dates: start: 20040412, end: 20040504
  2. LEVOTHROID [Suspect]
     Indication: HYPOTHYROIDISM
     Dates: start: 19870101
  3. LEVOTHROID [Suspect]
     Indication: HYPOTHYROIDISM
     Dosage: 100 MCG QD PO
     Route: 048
     Dates: end: 20040411
  4. PREMARIN [Concomitant]

REACTIONS (10)
  - ASTHENIA [None]
  - BLOOD PRESSURE INCREASED [None]
  - DIZZINESS [None]
  - FEELING ABNORMAL [None]
  - MIGRAINE [None]
  - NASAL SINUS DRAINAGE [None]
  - PHARMACEUTICAL PRODUCT COMPLAINT [None]
  - THYROXINE INCREASED [None]
  - TINNITUS [None]
  - VISUAL DISTURBANCE [None]
